FAERS Safety Report 24344800 (Version 3)
Quarter: 2025Q3

REPORT INFORMATION
  Report Type: Report from Study
  Country: MX (occurrence: MX)
  Receive Date: 20240920
  Receipt Date: 20250804
  Transmission Date: 20251020
  Serious: Yes (Life-Threatening, Other)
  Sender: NOVARTIS
  Company Number: MX-002147023-NVSC2024MX081458

PATIENT
  Age: 69 Year
  Sex: Female
  Weight: 48 kg

DRUGS (5)
  1. OFATUMUMAB [Suspect]
     Active Substance: OFATUMUMAB
     Indication: Multiple sclerosis
     Dosage: 20 MG, QW
     Route: 058
     Dates: start: 20240408
  2. OFATUMUMAB [Suspect]
     Active Substance: OFATUMUMAB
     Route: 065
     Dates: start: 20240415
  3. OFATUMUMAB [Suspect]
     Active Substance: OFATUMUMAB
     Route: 065
     Dates: start: 20240422
  4. OFATUMUMAB [Suspect]
     Active Substance: OFATUMUMAB
     Route: 065
     Dates: start: 20240506
  5. OFATUMUMAB [Suspect]
     Active Substance: OFATUMUMAB
     Dosage: 20 MG, QMO
     Route: 058
     Dates: start: 20240606, end: 20240806

REACTIONS (29)
  - Lymphocyte count decreased [Recovered/Resolved]
  - Intestinal obstruction [Unknown]
  - Dizziness [Recovered/Resolved]
  - Headache [Recovered/Resolved]
  - Decreased immune responsiveness [Recovered/Resolved]
  - Oropharyngeal pain [Recovered/Resolved]
  - Cough [Recovering/Resolving]
  - Oropharyngeal discomfort [Recovered/Resolved]
  - Fatigue [Recovered/Resolved]
  - Dry skin [Not Recovered/Not Resolved]
  - Hair texture abnormal [Not Recovered/Not Resolved]
  - Tachycardia [Recovered/Resolved]
  - Abdominal discomfort [Unknown]
  - Decreased appetite [Recovered/Resolved]
  - Laziness [Unknown]
  - Feeling abnormal [Not Recovered/Not Resolved]
  - Headache [Recovered/Resolved]
  - Nausea [Recovered/Resolved]
  - Malaise [Not Recovered/Not Resolved]
  - Fatigue [Recovered/Resolved]
  - Decreased appetite [Recovered/Resolved]
  - Asthenia [Recovered/Resolved]
  - Influenza [Recovered/Resolved]
  - Oropharyngeal discomfort [Recovered/Resolved]
  - Decreased immune responsiveness [Recovered/Resolved]
  - Pyrexia [Recovered/Resolved]
  - Weight decreased [Recovered/Resolved]
  - Drug intolerance [Not Recovered/Not Resolved]
  - Herpes virus infection [Unknown]

NARRATIVE: CASE EVENT DATE: 20240401
